FAERS Safety Report 19256866 (Version 2)
Quarter: 2021Q3

REPORT INFORMATION
  Report Type: Spontaneous
  Country: US (occurrence: US)
  Receive Date: 20210513
  Receipt Date: 20210721
  Transmission Date: 20211014
  Serious: Yes (Life-Threatening, Hospitalization)
  Sender: FDA-Public Use
  Company Number: US-TEVA-2021-US-1910081

PATIENT
  Age: 10 Month
  Sex: Female

DRUGS (2)
  1. PROPOFOL. [Suspect]
     Active Substance: PROPOFOL
     Indication: SEDATION
     Route: 065
  2. VENLAFAXINE [Suspect]
     Active Substance: VENLAFAXINE HYDROCHLORIDE
     Indication: ACCIDENTAL OVERDOSE
     Dosage: FORMULATION: PILLS; UNKNOWN QUANTITY INGESTED
     Route: 048

REACTIONS (8)
  - Cardiogenic shock [Recovered/Resolved]
  - Accidental overdose [Unknown]
  - Electrocardiogram abnormal [Recovered/Resolved]
  - Toxicity to various agents [Recovering/Resolving]
  - Status epilepticus [Recovering/Resolving]
  - Haemodynamic instability [Recovered/Resolved]
  - Ventricular tachycardia [Recovered/Resolved]
  - Stress cardiomyopathy [Recovered/Resolved]
